FAERS Safety Report 9012446 (Version 2)
Quarter: 2013Q1

REPORT INFORMATION
  Report Type: Spontaneous
  Country: US (occurrence: FR)
  Receive Date: 20130114
  Receipt Date: 20130116
  Transmission Date: 20140127
  Serious: Yes (Other)
  Sender: FDA-Public Use
  Company Number: FR-PFIZER INC-2013011254

PATIENT
  Age: 66 Year
  Sex: Female

DRUGS (1)
  1. LIDOCAINE HCL [Suspect]
     Indication: ANALGESIC THERAPY
     Dosage: 2 %, UNKNOWN
     Route: 061

REACTIONS (4)
  - Cerebellar syndrome [Recovered/Resolved]
  - Aphasia [Recovered/Resolved]
  - Balance disorder [Recovered/Resolved]
  - Dyskinesia [Recovered/Resolved]
